FAERS Safety Report 16897010 (Version 1)
Quarter: 2019Q4

REPORT INFORMATION
  Report Type: Spontaneous
  Country: BR (occurrence: BR)
  Receive Date: 20191009
  Receipt Date: 20191009
  Transmission Date: 20200122
  Serious: Yes (Other)
  Sender: FDA-Public Use
  Company Number: BR-US-PROVELL PHARMACEUTICALS LLC-9119862

PATIENT
  Age: 36 Year
  Sex: Female

DRUGS (2)
  1. EUTHYROX [Suspect]
     Active Substance: LEVOTHYROXINE SODIUM
     Dosage: DOSE ADJUSTED WITH RESPECT TO THE CHANGE IN THYROID STIMULATING HORMONE
     Dates: start: 2018
  2. EUTHYROX [Suspect]
     Active Substance: LEVOTHYROXINE SODIUM
     Indication: POST PROCEDURAL HYPOTHYROIDISM
     Dates: start: 2012

REACTIONS (5)
  - Large for dates baby [Unknown]
  - Live birth [Recovered/Resolved]
  - Blood thyroid stimulating hormone abnormal [Unknown]
  - Breast feeding [Unknown]
  - Maternal exposure during pregnancy [Recovered/Resolved]

NARRATIVE: CASE EVENT DATE: 2018
